FAERS Safety Report 9999239 (Version 2)
Quarter: 2014Q2

REPORT INFORMATION
  Report Type: Spontaneous
  Country: SE (occurrence: SE)
  Receive Date: 20140312
  Receipt Date: 20140507
  Transmission Date: 20141212
  Serious: Yes (Hospitalization, Other)
  Sender: FDA-Public Use
  Company Number: SE-ELI_LILLY_AND_COMPANY-SE201403001110

PATIENT
  Age: 81 Year
  Sex: Male

DRUGS (4)
  1. TOBRAMYCIN SULFATE [Suspect]
     Indication: PRODUCT USED FOR UNKNOWN INDICATION
     Dosage: 60 MG, TID
     Route: 065
  2. WARFARIN [Concomitant]
     Indication: ATRIAL FIBRILLATION
  3. VITAMIN K                          /00032401/ [Concomitant]
  4. PENICILLIN                         /00001802/ [Concomitant]
     Dosage: 3 G, OTHER
     Route: 065

REACTIONS (2)
  - Hearing impaired [Unknown]
  - Vertigo [Unknown]
